FAERS Safety Report 24061685 (Version 1)
Quarter: 2024Q3

REPORT INFORMATION
  Report Type: Spontaneous
  Country: CN (occurrence: CN)
  Receive Date: 20240708
  Receipt Date: 20240708
  Transmission Date: 20241017
  Serious: Yes (Life-Threatening)
  Sender: BAYER
  Company Number: CN-BAYER-2024A097672

PATIENT
  Age: 62 Year
  Sex: Female
  Weight: 49 kg

DRUGS (2)
  1. ULTRAVIST [Suspect]
     Active Substance: IOPROMIDE
     Indication: Computerised tomogram
     Dosage: 66 ML, ONCE
     Route: 042
     Dates: start: 20240628, end: 20240628
  2. ULTRAVIST [Suspect]
     Active Substance: IOPROMIDE
     Indication: Rectal cancer stage 0

REACTIONS (10)
  - Anaphylactic shock [Recovering/Resolving]
  - Respiratory failure [Recovering/Resolving]
  - Heart rate decreased [Recovered/Resolved]
  - Oxygen saturation immeasurable [Recovered/Resolved]
  - Unresponsive to stimuli [None]
  - Urinary incontinence [None]
  - Tachypnoea [None]
  - Cough [None]
  - Cyanosis [None]
  - Sluggishness [None]

NARRATIVE: CASE EVENT DATE: 20240628
